FAERS Safety Report 23241749 (Version 1)
Quarter: 2023Q4

REPORT INFORMATION
  Report Type: Spontaneous
  Country: KR (occurrence: KR)
  Receive Date: 20231129
  Receipt Date: 20231129
  Transmission Date: 20240110
  Serious: Yes (Hospitalization, Other)
  Sender: FDA-Public Use
  Company Number: KR-SA-SAC20231124000056

PATIENT
  Age: 68 Year
  Sex: Female

DRUGS (1)
  1. PLAVIX [Suspect]
     Active Substance: CLOPIDOGREL BISULFATE
     Dosage: 1 DF, QD
     Route: 048
     Dates: start: 20190408, end: 20190408

REACTIONS (6)
  - Seizure [Recovered/Resolved]
  - Depressed level of consciousness [Recovered/Resolved]
  - Oxygen saturation decreased [Recovered/Resolved]
  - Circumoral oedema [Recovered/Resolved]
  - Hypotension [Recovered/Resolved]
  - Anaphylactic reaction [Recovered/Resolved]

NARRATIVE: CASE EVENT DATE: 20210408
